FAERS Safety Report 21567970 (Version 1)
Quarter: 2022Q4

REPORT INFORMATION
  Report Type: Spontaneous
  Country: US (occurrence: US)
  Receive Date: 20221108
  Receipt Date: 20221108
  Transmission Date: 20230113
  Serious: Yes (Disabling)
  Sender: FDA-Public Use
  Company Number: US-PFIZER INC-202201279492

PATIENT
  Age: 61 Year
  Sex: Female
  Weight: 54.43 kg

DRUGS (3)
  1. PAXLOVID [Suspect]
     Active Substance: NIRMATRELVIR\RITONAVIR
     Indication: COVID-19 treatment
     Dosage: UNK, 2X/DAY, (300MG/100MG DOSE PACK, AS DIRECTED TWICE A DAY)
     Dates: start: 20221101
  2. ESTRADIOL [Concomitant]
     Active Substance: ESTRADIOL
     Indication: Radical hysterectomy
     Dosage: UNK(VERY, VERY LOW DOSE OF 0.5)
  3. PREDNISONE [Concomitant]
     Active Substance: PREDNISONE
     Dosage: 5 MG, AS NEEDED(5MG, TAPERING DOSE, PRN ORDER)

REACTIONS (1)
  - Hepatic pain [Not Recovered/Not Resolved]

NARRATIVE: CASE EVENT DATE: 20221101
